FAERS Safety Report 4829452-X (Version None)
Quarter: 2005Q4

REPORT INFORMATION
  Report Type: 
  Country: None (occurrence: None)
  Receive Date: 20051116
  Receipt Date: 20050829
  Transmission Date: 20060501
  Serious: Yes (Other)
  Sender: FDA-Public Use
  Company Number: PHEH2005US09605

PATIENT
  Age: 65 Year
  Sex: Male
  Weight: 73 kg

DRUGS (5)
  1. ZOMETA [Suspect]
     Indication: MULTIPLE MYELOMA
     Dosage: 4 MG EVERY MONTH
     Route: 042
     Dates: start: 20031111, end: 20050613
  2. MELPHALAN [Concomitant]
     Indication: MULTIPLE MYELOMA
     Dosage: 14 MG, QDX4, Q4-6 WEEKS
     Dates: start: 20040223
  3. PREDNISONE [Concomitant]
     Indication: MULTIPLE MYELOMA
     Dosage: 120 MG, QD X 4 Q4-6 WEEKS
     Dates: start: 20040223
  4. THALIDOMIDE [Concomitant]
     Dosage: 200 MG, QD
     Dates: start: 20031101, end: 20040101
  5. DEXAMETHASONE [Concomitant]
     Dosage: 10 MG X 4DAYS QMONTH
     Dates: start: 20031101, end: 20040101

REACTIONS (9)
  - ALVEOLOPLASTY [None]
  - BONE DISORDER [None]
  - EDENTULOUS [None]
  - EXOSTOSIS [None]
  - ORAL PAIN [None]
  - ORAL SOFT TISSUE DISORDER [None]
  - OSTEOMYELITIS [None]
  - OSTEONECROSIS [None]
  - TOOTH EXTRACTION [None]
